FAERS Safety Report 10790478 (Version 7)
Quarter: 2015Q2

REPORT INFORMATION
  Report Type: Spontaneous
  Country: IL (occurrence: IL)
  Receive Date: 20150212
  Receipt Date: 20150625
  Transmission Date: 20150821
  Serious: Yes (Hospitalization, Other)
  Sender: FDA-Public Use
  Company Number: IL-PFIZER INC-2015045904

PATIENT
  Age: 62 Year
  Sex: Male

DRUGS (2)
  1. INLYTA [Suspect]
     Active Substance: AXITINIB
     Indication: RENAL CELL CARCINOMA
     Dosage: 5 MG, 2X/DAY, CONSECUTIVELY, CUMULATIVE DOSE WAS OVER 200 MG
     Route: 048
     Dates: start: 20150201, end: 20150422
  2. INLYTA [Suspect]
     Active Substance: AXITINIB
     Dosage: 3 MG, 2X/DAY
     Route: 048
     Dates: start: 20150423

REACTIONS (16)
  - Fatigue [Not Recovered/Not Resolved]
  - Renal cell carcinoma [Not Recovered/Not Resolved]
  - Chest pain [Unknown]
  - Movement disorder [Not Recovered/Not Resolved]
  - Protein urine present [Recovering/Resolving]
  - Hemiparesis [Not Recovered/Not Resolved]
  - Dry skin [Not Recovered/Not Resolved]
  - Depressed mood [Not Recovered/Not Resolved]
  - Skin discolouration [Not Recovered/Not Resolved]
  - Toothache [Recovering/Resolving]
  - Disease progression [Not Recovered/Not Resolved]
  - Epistaxis [Recovered/Resolved]
  - Constipation [Not Recovered/Not Resolved]
  - Odynophagia [Recovering/Resolving]
  - Blood pressure increased [Not Recovered/Not Resolved]
  - Asthenia [Not Recovered/Not Resolved]

NARRATIVE: CASE EVENT DATE: 2015
